FAERS Safety Report 12659413 (Version 2)
Quarter: 2016Q4

REPORT INFORMATION
  Report Type: Report from Study
  Country: US (occurrence: US)
  Receive Date: 20160817
  Receipt Date: 20161228
  Transmission Date: 20170207
  Serious: No
  Sender: FDA-Public Use
  Company Number: US-JNJFOC-20160809800

PATIENT
  Sex: Female

DRUGS (15)
  1. IMBRUVICA [Suspect]
     Active Substance: IBRUTINIB
     Indication: CHRONIC LYMPHOCYTIC LEUKAEMIA
     Route: 048
     Dates: start: 20140701
  2. METFORMIN [Concomitant]
     Active Substance: METFORMIN HYDROCHLORIDE
  3. MOBIC [Concomitant]
     Active Substance: MELOXICAM
  4. GABAPENTIN. [Concomitant]
     Active Substance: GABAPENTIN
  5. LISINOPRIL. [Concomitant]
     Active Substance: LISINOPRIL
  6. PRILOSEC [Concomitant]
     Active Substance: OMEPRAZOLE MAGNESIUM
  7. NORCO [Concomitant]
     Active Substance: ACETAMINOPHEN\HYDROCODONE BITARTRATE
  8. VITAMIN D [Concomitant]
     Active Substance: CHOLECALCIFEROL
  9. CALCIUM [Concomitant]
     Active Substance: CALCIUM
  10. COENZYME Q10 [Concomitant]
     Active Substance: UBIDECARENONE
  11. NEXIUM [Concomitant]
     Active Substance: ESOMEPRAZOLE MAGNESIUM
  12. ZANTAC [Concomitant]
     Active Substance: RANITIDINE HYDROCHLORIDE
  13. ZOFRAN [Concomitant]
     Active Substance: ONDANSETRON HYDROCHLORIDE
  14. ZOCOR [Concomitant]
     Active Substance: SIMVASTATIN
  15. VITAMIN B [Concomitant]
     Active Substance: VITAMIN B

REACTIONS (2)
  - Muscle twitching [Recovered/Resolved]
  - Hand deformity [Recovered/Resolved]
